FAERS Safety Report 8087419-5 (Version None)
Quarter: 2012Q1

REPORT INFORMATION
  Report Type: 
  Country: None (occurrence: None)
  Receive Date: 20120128
  Receipt Date: 20110531
  Transmission Date: 20120608
  Serious: No
  Sender: FDA-Public Use
  Company Number: US-ABBOTT-11P-163-0724366-00

PATIENT
  Age: 49 Year
  Sex: Male

DRUGS (6)
  1. TOPICAL OINTMENT [Concomitant]
     Indication: PSORIASIS
     Dosage: ABOUT 2 TIMES PER WEEK
     Route: 061
  2. MELOXICAM [Concomitant]
     Indication: ARTHRALGIA
     Dosage: AS NEEDED, USUALLY 1-2 TIMES PER WEEK
  3. DAILY SUPPLEMENTS [Concomitant]
     Indication: PRODUCT USED FOR UNKNOWN INDICATION
     Dosage: DAILY
  4. VITAMIN TAB [Concomitant]
     Indication: PRODUCT USED FOR UNKNOWN INDICATION
  5. HUMIRA [Suspect]
     Indication: PSORIATIC ARTHROPATHY
     Dates: start: 20090901
  6. MELOXICAM [Concomitant]
     Indication: INFLAMMATION

REACTIONS (7)
  - PAIN [None]
  - RASH [None]
  - HEADACHE [None]
  - ANXIETY [None]
  - OROPHARYNGEAL PAIN [None]
  - MALAISE [None]
  - PSORIASIS [None]
